FAERS Safety Report 10588647 (Version 2)
Quarter: 2015Q1

REPORT INFORMATION
  Report Type: Report from Study
  Country: BR (occurrence: BR)
  Receive Date: 20141117
  Receipt Date: 20150219
  Transmission Date: 20150720
  Serious: Yes (Other)
  Sender: FDA-Public Use
  Company Number: PHHY2014BR149584

PATIENT
  Sex: Female
  Weight: 60 kg

DRUGS (6)
  1. EXELON PATCH [Suspect]
     Active Substance: RIVASTIGMINE
     Dosage: 13.3 MG (15 CM2), QD
     Route: 062
     Dates: end: 201501
  2. SINVASTATINA [Concomitant]
     Active Substance: SIMVASTATIN
     Indication: BLOOD CHOLESTEROL ABNORMAL
     Dosage: 1 DF, QD
     Route: 065
  3. SOMALGIN [Concomitant]
     Active Substance: ASPIRIN\DIHYDROXYALUMINUM AMINOACETATE ANHYDROUS\MAGNESIUM CARBONATE
     Indication: ATRIOVENTRICULAR BLOCK
     Dosage: 1 DF, QD (AFTER LUNCH)
     Route: 065
  4. EXELON PATCH [Suspect]
     Active Substance: RIVASTIGMINE
     Dosage: 9.5 MG (10 CM2), QD
     Route: 062
     Dates: start: 201406
  5. ABLOK PLUS [Concomitant]
     Active Substance: ATENOLOL\CHLORTHALIDONE
     Indication: HYPERTENSION
     Dosage: 1 DF, QD
     Route: 065
  6. EXELON PATCH [Suspect]
     Active Substance: RIVASTIGMINE
     Indication: DEPRESSION
     Dosage: 4.6 MG (5 CM2), QD
     Route: 062
     Dates: start: 201404, end: 201406

REACTIONS (4)
  - Labyrinthitis [Recovering/Resolving]
  - Dizziness [Recovering/Resolving]
  - Tachycardia [Recovering/Resolving]
  - Product use issue [Unknown]
